FAERS Safety Report 7227756-7 (Version None)
Quarter: 2011Q1

REPORT INFORMATION
  Report Type: 
  Country: None (occurrence: None)
  Receive Date: 20110114
  Receipt Date: 20110106
  Transmission Date: 20110831
  Serious: No
  Sender: FDA-Public Use
  Company Number: US-PFIZER INC-2011005898

PATIENT
  Age: 57 Year
  Sex: Female
  Weight: 86.168 kg

DRUGS (1)
  1. ADVIL PM [Suspect]
     Dosage: 1 CAPLET
     Route: 048
     Dates: start: 20100101, end: 20100101

REACTIONS (1)
  - TINNITUS [None]
